FAERS Safety Report 15772978 (Version 1)
Quarter: 2018Q4

REPORT INFORMATION
  Report Type: Spontaneous
  Country: FR (occurrence: FR)
  Receive Date: 20181228
  Receipt Date: 20181228
  Transmission Date: 20190205
  Serious: Yes (Hospitalization)
  Sender: FDA-Public Use
  Company Number: FR-B.I. PHARMACEUTICALS,INC./RIDGEFIELD-2012-FF-00989FF

PATIENT
  Sex: Female

DRUGS (1)
  1. PRADAXA [Suspect]
     Active Substance: DABIGATRAN ETEXILATE MESYLATE
     Indication: THROMBOSIS PROPHYLAXIS
     Route: 048
     Dates: start: 2011

REACTIONS (7)
  - Oedema peripheral [Unknown]
  - Musculoskeletal pain [Unknown]
  - Hip arthroplasty [Recovered/Resolved]
  - Peripheral artery stent insertion [Unknown]
  - Muscle atrophy [Unknown]
  - Suture rupture [Unknown]
  - Wound secretion [Unknown]

NARRATIVE: CASE EVENT DATE: 2011
